FAERS Safety Report 8211608-X (Version None)
Quarter: 2012Q1

REPORT INFORMATION
  Report Type: 
  Country: None (occurrence: None)
  Receive Date: 20120315
  Receipt Date: 20120305
  Transmission Date: 20120608
  Serious: Yes (Hospitalization)
  Sender: FDA-Public Use
  Company Number: JP-BRISTOL-MYERS SQUIBB COMPANY-16432031

PATIENT
  Age: 72 Year
  Sex: Male

DRUGS (5)
  1. TEGAFUR [Interacting]
     Indication: ADJUVANT THERAPY
     Dosage: CAPS.200 MG*2*2/D
  2. TICLOPIDINE HCL [Suspect]
     Indication: MYOCARDIAL INFARCTION
  3. URACIL MUSTARD [Interacting]
     Indication: ADJUVANT THERAPY
     Dosage: CAPS.448 MG*2*2/DAY
  4. ASPIRIN [Suspect]
     Indication: MYOCARDIAL INFARCTION
  5. WARFARIN SODIUM [Interacting]
     Indication: MYOCARDIAL INFARCTION

REACTIONS (2)
  - DRUG INTERACTION [None]
  - PULMONARY ALVEOLAR HAEMORRHAGE [None]
